FAERS Safety Report 15509113 (Version 1)
Quarter: 2018Q4

REPORT INFORMATION
  Report Type: Spontaneous
  Country: US (occurrence: US)
  Receive Date: 20181016
  Receipt Date: 20181016
  Transmission Date: 20190205
  Serious: No
  Sender: FDA-Public Use
  Company Number: None

PATIENT
  Age: 27 Year
  Sex: Female
  Weight: 76.95 kg

DRUGS (4)
  1. BIOTIN [Concomitant]
     Active Substance: BIOTIN
  2. DAILY VITAMIN [Concomitant]
     Active Substance: VITAMINS
  3. VITAMIN C [Concomitant]
     Active Substance: ASCORBIC ACID
  4. VENLAFAXINE XR [Suspect]
     Active Substance: VENLAFAXINE HYDROCHLORIDE
     Indication: DEPRESSION
     Dosage: ?          QUANTITY:30 CAPSULE(S);?
     Route: 048
     Dates: start: 20181011, end: 20181014

REACTIONS (9)
  - Dizziness [None]
  - Hypersomnia [None]
  - Tremor [None]
  - Feeling abnormal [None]
  - Migraine [None]
  - Vomiting [None]
  - Decreased appetite [None]
  - Pain [None]
  - Fear [None]

NARRATIVE: CASE EVENT DATE: 20181013
